FAERS Safety Report 12795299 (Version 1)
Quarter: 2016Q3

REPORT INFORMATION
  Report Type: Spontaneous
  Country: US (occurrence: US)
  Receive Date: 20160929
  Receipt Date: 20160929
  Transmission Date: 20161109
  Serious: No
  Sender: FDA-Public Use
  Company Number: US-GLAXOSMITHKLINE-US2016GSK140014

PATIENT
  Sex: Female

DRUGS (1)
  1. LAMOTRIGINE TABLET [Suspect]
     Active Substance: LAMOTRIGINE
     Indication: SEIZURE
     Dosage: 100 MG, UNK
     Dates: start: 2003, end: 2013

REACTIONS (3)
  - Hyperhidrosis [Unknown]
  - Tremor [Unknown]
  - Product substitution issue [Unknown]
